FAERS Safety Report 6910769-X (Version None)
Quarter: 2010Q3

REPORT INFORMATION
  Report Type: 
  Country: None (occurrence: None)
  Receive Date: 20100806
  Receipt Date: 20100802
  Transmission Date: 20110219
  Serious: Yes (Other)
  Sender: FDA-Public Use
  Company Number: JP-SANOFI-AVENTIS-2010SA003231

PATIENT
  Sex: Female

DRUGS (4)
  1. APIDRA [Suspect]
     Route: 058
     Dates: start: 20090807, end: 20100114
  2. SOLOSTAR [Suspect]
     Dates: start: 20090807, end: 20100114
  3. LANTUS [Concomitant]
  4. SOLOSTAR [Concomitant]

REACTIONS (1)
  - HEPATIC FUNCTION ABNORMAL [None]
